FAERS Safety Report 21510821 (Version 1)
Quarter: 2022Q4

REPORT INFORMATION
  Report Type: Spontaneous
  Country: US (occurrence: US)
  Receive Date: 20221026
  Receipt Date: 20221026
  Transmission Date: 20230113
  Serious: No
  Sender: FDA-Public Use
  Company Number: US-PURDUE PHARMA-USA-2022-0296446

PATIENT
  Age: 72 Year
  Sex: Male
  Weight: 90.72 kg

DRUGS (1)
  1. OXYCODONE HYDROCHLORIDE [Suspect]
     Active Substance: OXYCODONE HYDROCHLORIDE
     Indication: Back injury
     Dosage: 15 MILLIGRAM, QID
     Route: 048

REACTIONS (4)
  - Abdominal discomfort [Unknown]
  - Illness [Unknown]
  - Vomiting [Unknown]
  - Abdominal pain upper [Unknown]
